FAERS Safety Report 7257021-3 (Version None)
Quarter: 2011Q1

REPORT INFORMATION
  Report Type: 
  Country: None (occurrence: None)
  Receive Date: 20110129
  Receipt Date: 20100729
  Transmission Date: 20110831
  Serious: No
  Sender: FDA-Public Use
  Company Number: US-ABBOTT-10P-163-0660707-00

PATIENT
  Age: 73 Year
  Sex: Female

DRUGS (9)
  1. CLARITIN [Concomitant]
     Indication: SEASONAL ALLERGY
  2. HUMIRA [Suspect]
     Indication: CROHN'S DISEASE
     Dates: start: 20070701
  3. CONSTILAC [Concomitant]
     Indication: CONSTIPATION
  4. PLAVIX [Concomitant]
     Indication: CEREBROVASCULAR ACCIDENT
  5. PROMETHAZINE [Concomitant]
     Indication: SEASONAL ALLERGY
  6. DIPYRIDAMOLE [Concomitant]
     Indication: CEREBROVASCULAR ACCIDENT
  7. WELLBUTRIN [Concomitant]
     Indication: PRODUCT USED FOR UNKNOWN INDICATION
  8. VYTORIN [Concomitant]
     Indication: BLOOD CHOLESTEROL INCREASED
  9. PROTONIX [Concomitant]
     Indication: GASTROOESOPHAGEAL REFLUX DISEASE

REACTIONS (9)
  - EYE PRURITUS [None]
  - RASH MACULAR [None]
  - EYE DISCHARGE [None]
  - NASAL CONGESTION [None]
  - HYPERSENSITIVITY [None]
  - HAEMOPTYSIS [None]
  - RHINORRHOEA [None]
  - EYE SWELLING [None]
  - OCULAR HYPERAEMIA [None]
